FAERS Safety Report 7732325-6 (Version None)
Quarter: 2011Q3

REPORT INFORMATION
  Report Type: 
  Country: None (occurrence: None)
  Receive Date: 20110906
  Receipt Date: 20110830
  Transmission Date: 20111222
  Serious: Yes (Hospitalization)
  Sender: FDA-Public Use
  Company Number: AU-B.I. PHARMACEUTICALS,INC./RIDGEFIELD-2011-AU-00905AU

PATIENT
  Sex: Male
  Weight: 88.5 kg

DRUGS (4)
  1. PRADAXA [Suspect]
     Indication: ATRIAL FIBRILLATION
     Dosage: 220 MG
     Dates: start: 20110804, end: 20110817
  2. PERINDOPRIL ERBUMINE [Concomitant]
  3. ACETAMINOPHEN [Concomitant]
     Dosage: 2 TABLETS FOUR TIMES DAILY AS REQUIRED
  4. NOTEN [Concomitant]

REACTIONS (2)
  - APHASIA [None]
  - TRANSIENT ISCHAEMIC ATTACK [None]
